FAERS Safety Report 4621347-X (Version None)
Quarter: 2005Q1

REPORT INFORMATION
  Report Type: 
  Country: None (occurrence: None)
  Receive Date: 20050324
  Receipt Date: 20050324
  Transmission Date: 20050727
  Serious: Yes (Life-Threatening, Hospitalization)
  Sender: FDA-Public Use
  Company Number: None

PATIENT
  Age: 41 Year
  Sex: Male
  Weight: 145.6046 kg

DRUGS (6)
  1. CRESTOR [Suspect]
     Indication: HYPERLIPIDAEMIA
     Dosage: 10 MG   Q HS    ORAL
     Route: 048
     Dates: start: 20040803, end: 20050318
  2. CLONIDINE [Concomitant]
  3. HYDRALAZINE [Concomitant]
  4. NORVASC [Concomitant]
  5. COREG [Concomitant]
  6. ASPIRIN [Concomitant]

REACTIONS (3)
  - DIALYSIS [None]
  - LEUKOCYTOCLASTIC VASCULITIS [None]
  - RENAL FAILURE ACUTE [None]
